FAERS Safety Report 18269333 (Version 1)
Quarter: 2020Q3

REPORT INFORMATION
  Report Type: Spontaneous
  Country: FR (occurrence: FR)
  Receive Date: 20200915
  Receipt Date: 20200915
  Transmission Date: 20201103
  Serious: Yes (Other)
  Sender: FDA-Public Use
  Company Number: FR-JAZZ-2020-FR-006327

PATIENT

DRUGS (9)
  1. ARACYTINE [Concomitant]
     Active Substance: CYTARABINE
     Indication: ACUTE LYMPHOCYTIC LEUKAEMIA
     Dosage: CONSOLIDATION 1, WEEK 1
     Dates: start: 20170918
  2. METHOTREXATE. [Concomitant]
     Active Substance: METHOTREXATE
     Dosage: WEEK 5
     Dates: start: 20171127
  3. VINCRISTINE [Concomitant]
     Active Substance: VINCRISTINE
     Indication: ACUTE LYMPHOCYTIC LEUKAEMIA
     Dosage: MAINTENANCE TREATMENT
     Dates: start: 20180426
  4. METHOTREXATE. [Concomitant]
     Active Substance: METHOTREXATE
     Dosage: WEEK 2
     Dates: start: 20171016
  5. PURINETHOL [Concomitant]
     Active Substance: MERCAPTOPURINE
     Indication: ACUTE LYMPHOCYTIC LEUKAEMIA
     Dosage: MAINTENANCE TREATMENT
     Dates: start: 20180426
  6. METHOTREXATE. [Concomitant]
     Active Substance: METHOTREXATE
     Indication: ACUTE LYMPHOCYTIC LEUKAEMIA
     Dosage: MAINTENANCE TREATMENT
     Dates: start: 20180426
  7. KIDROLASE [Suspect]
     Active Substance: ASPARAGINASE
     Indication: ACUTE LYMPHOCYTIC LEUKAEMIA
     Dosage: UNKNOWN DOSE
     Route: 065
     Dates: start: 2017, end: 20171204
  8. VP?16 [Concomitant]
     Active Substance: ETOPOSIDE
     Indication: ACUTE LYMPHOCYTIC LEUKAEMIA
     Dosage: UNK
     Dates: start: 20170908
  9. ARACYTINE [Concomitant]
     Active Substance: CYTARABINE
     Dosage: WEEK 4
     Dates: start: 20171113

REACTIONS (2)
  - Leukaemia recurrent [Unknown]
  - Drug specific antibody present [Unknown]

NARRATIVE: CASE EVENT DATE: 20171204
